FAERS Safety Report 17044200 (Version 4)
Quarter: 2020Q1

REPORT INFORMATION
  Report Type: Spontaneous
  Country: IN (occurrence: IN)
  Receive Date: 20191118
  Receipt Date: 20200128
  Transmission Date: 20200409
  Serious: Yes (Death, Hospitalization)
  Sender: FDA-Public Use
  Company Number: IN-JNJFOC-20191111546

PATIENT
  Age: 14 Year
  Sex: Female
  Weight: 28 kg

DRUGS (15)
  1. CYCLOSERINE. [Suspect]
     Active Substance: CYCLOSERINE
     Indication: TUBERCULOSIS
     Dates: start: 20190626
  2. BUDAMATE                           /00614601/ [Concomitant]
     Indication: DYSPNOEA
     Dosage: 200MG MDI (INHALED CORTICOSTEROID), 2 PUFF TWICE DAILY
     Route: 065
     Dates: start: 20190722
  3. OMEPRAZOLE. [Concomitant]
     Active Substance: OMEPRAZOLE
     Indication: ANTACID THERAPY
     Dates: start: 20190722
  4. ABACAVIR. [Concomitant]
     Active Substance: ABACAVIR
     Indication: ANTIVIRAL TREATMENT
     Route: 065
     Dates: start: 20190722
  5. DELAMANID [Suspect]
     Active Substance: DELAMANID
     Indication: TUBERCULOSIS
     Route: 048
     Dates: start: 20190626
  6. DOLUTEGRAVIR [Concomitant]
     Active Substance: DOLUTEGRAVIR
     Indication: ANTIVIRAL TREATMENT
     Route: 065
     Dates: start: 20190722
  7. PYRIDOXINE [Concomitant]
     Active Substance: PYRIDOXINE
     Indication: NEUROPATHY PERIPHERAL
     Dates: start: 20190722
  8. FERROUS SULFATE W/FOLIC ACID [Concomitant]
     Active Substance: FERROUS SULFATE\FOLIC ACID
     Indication: MINERAL SUPPLEMENTATION
     Route: 065
     Dates: start: 20190722
  9. BEDAQUILINE [Suspect]
     Active Substance: BEDAQUILINE
     Indication: TUBERCULOSIS
     Route: 048
     Dates: start: 20190722
  10. IMIPENEM [Suspect]
     Active Substance: IMIPENEM
     Indication: TUBERCULOSIS
     Route: 042
     Dates: start: 20190722
  11. CLOFAZIMINE [Suspect]
     Active Substance: CLOFAZIMINE
     Indication: TUBERCULOSIS
     Dosage: ALTERNATE DAY
     Route: 048
     Dates: start: 20190626
  12. EMETAL                             /00041901/ [Concomitant]
     Indication: ANTIEMETIC SUPPORTIVE CARE
     Dates: start: 20190722
  13. ONDANSETRON [Concomitant]
     Active Substance: ONDANSETRON
     Indication: ANTIEMETIC SUPPORTIVE CARE
     Dosage: ONCE DAILY   TAB SOS
     Dates: start: 20190722
  14. AMOXCLAV                           /00852501/ [Suspect]
     Active Substance: AMOXICILLIN\CLAVULANIC ACID
     Indication: TUBERCULOSIS
     Route: 048
     Dates: start: 20190722
  15. LAMIVUDINE. [Concomitant]
     Active Substance: LAMIVUDINE
     Indication: ANTIVIRAL TREATMENT
     Route: 065
     Dates: start: 20190722

REACTIONS (7)
  - Dyspnoea [Fatal]
  - Vulvovaginal pruritus [Unknown]
  - Haemoptysis [Unknown]
  - Pneumothorax [Unknown]
  - Dysuria [Unknown]
  - Urine output decreased [Unknown]
  - Cough [Unknown]

NARRATIVE: CASE EVENT DATE: 201908
